FAERS Safety Report 13930299 (Version 2)
Quarter: 2017Q3

REPORT INFORMATION
  Report Type: Report from Study
  Country: GT (occurrence: GT)
  Receive Date: 20170901
  Receipt Date: 20170913
  Transmission Date: 20171127
  Serious: Yes (Hospitalization)
  Sender: FDA-Public Use
  Company Number: PHHY2017GT127172

PATIENT
  Sex: Female
  Weight: 150 kg

DRUGS (5)
  1. ESOMEPRAZOLE [Concomitant]
     Active Substance: ESOMEPRAZOLE
     Indication: PRODUCT USED FOR UNKNOWN INDICATION
     Route: 065
  2. RASILEZ [Suspect]
     Active Substance: ALISKIREN
     Indication: CARDIAC DISORDER
     Dosage: 300 MG, QD
     Route: 065
  3. CALCIUM [Concomitant]
     Active Substance: CALCIUM
     Indication: PRODUCT USED FOR UNKNOWN INDICATION
     Route: 065
  4. DIOVAN [Suspect]
     Active Substance: VALSARTAN
     Indication: CARDIAC DISORDER
     Dosage: 320 MG, QD
     Route: 048
  5. CO-DIOVAN [Suspect]
     Active Substance: HYDROCHLOROTHIAZIDE\VALSARTAN
     Indication: CARDIAC DISORDER
     Dosage: 1 DF, QD
     Route: 048

REACTIONS (10)
  - Blood pressure increased [Unknown]
  - Malaise [Unknown]
  - Urinary tract infection [Unknown]
  - Pleural effusion [Unknown]
  - Calcium metabolism disorder [Unknown]
  - Osteoporosis [Unknown]
  - Limb deformity [Unknown]
  - Heart rate decreased [Unknown]
  - Intentional overdose [Unknown]
  - Condition aggravated [Unknown]
